FAERS Safety Report 11653360 (Version 6)
Quarter: 2015Q4

REPORT INFORMATION
  Report Type: Spontaneous
  Country: FR (occurrence: FR)
  Receive Date: 20151022
  Receipt Date: 20151027
  Transmission Date: 20160304
  Serious: Yes (Other)
  Sender: FDA-Public Use
  Company Number: PHHY2014FR177664

PATIENT
  Age: 41 Year
  Sex: Male

DRUGS (6)
  1. METHYLPREDNISOLONE. [Suspect]
     Active Substance: METHYLPREDNISOLONE
     Indication: PRODUCT USED FOR UNKNOWN INDICATION
     Dosage: 80 MG, QD
     Route: 042
  2. FLUOROURACIL. [Suspect]
     Active Substance: FLUOROURACIL
     Indication: PRODUCT USED FOR UNKNOWN INDICATION
     Dosage: 4900 MG, QD
     Route: 042
  3. OXALIPLATIN. [Suspect]
     Active Substance: OXALIPLATIN
     Indication: PRODUCT USED FOR UNKNOWN INDICATION
     Dosage: 150 MG, QD
     Route: 042
  4. ZOPHREN [Suspect]
     Active Substance: ONDANSETRON
     Indication: PRODUCT USED FOR UNKNOWN INDICATION
     Dosage: 8 MG, QD
     Route: 042
  5. LEVOFOLINATE [Suspect]
     Active Substance: LEVOLEUCOVORIN CALCIUM
     Indication: PRODUCT USED FOR UNKNOWN INDICATION
     Dosage: 348 MG, SINGLE
     Route: 042
  6. REGORAFENIB [Concomitant]
     Active Substance: REGORAFENIB
     Indication: PRODUCT USED FOR UNKNOWN INDICATION
     Route: 065

REACTIONS (4)
  - Oedema [Unknown]
  - Paraesthesia [Unknown]
  - Polyneuropathy [Recovering/Resolving]
  - Induration [Unknown]

NARRATIVE: CASE EVENT DATE: 201312
